FAERS Safety Report 4342832-4 (Version None)
Quarter: 2004Q2

REPORT INFORMATION
  Report Type: 
  Country: None (occurrence: None)
  Receive Date: 20040416
  Receipt Date: 20040406
  Transmission Date: 20050107
  Serious: Yes (Hospitalization)
  Sender: FDA-Public Use
  Company Number: 2004207908US

PATIENT
  Age: 69 Year
  Sex: Female
  Weight: 94.3 kg

DRUGS (3)
  1. CELEBREX [Suspect]
     Indication: NON-SMALL CELL LUNG CANCER
     Dosage: 400 MG, BID, ORAL
     Route: 048
     Dates: start: 20040225
  2. COMPARATOR-GEMCITABINE (GEMCITABINE)  INJECTION [Suspect]
     Indication: NON-SMALL CELL LUNG CANCER
     Dosage: 1000 MG/M2, IV
     Route: 042
     Dates: start: 20040225, end: 20040303
  3. CARBOPLATIN [Suspect]
     Indication: NON-SMALL CELL LUNG CANCER
     Dosage: SINGLE
     Dates: start: 20040225, end: 20040225

REACTIONS (6)
  - ATELECTASIS [None]
  - CHEST PAIN [None]
  - DYSPNOEA EXERTIONAL [None]
  - HAEMOGLOBIN DECREASED [None]
  - PLATELET COUNT DECREASED [None]
  - WHITE BLOOD CELL COUNT DECREASED [None]
